FAERS Safety Report 10149341 (Version 1)
Quarter: 2014Q2

REPORT INFORMATION
  Report Type: Spontaneous
  Country: US (occurrence: None)
  Receive Date: 20140430
  Receipt Date: 20140430
  Transmission Date: 20141212
  Serious: Yes (Other)
  Sender: FDA-Public Use
  Company Number: A1005115A

PATIENT
  Age: 67 Year
  Sex: Male
  Weight: 96.21 kg

DRUGS (8)
  1. MARAVIROC [Suspect]
     Indication: HIV INFECTION
     Route: 048
     Dates: start: 20110225, end: 20121106
  2. TRUVADA [Concomitant]
  3. ETRAVIRINE [Concomitant]
  4. RALTEGRAVIR [Concomitant]
  5. RITONAVIR [Concomitant]
  6. DARUNAVIR [Concomitant]
  7. TENOFOVIR [Concomitant]
  8. EMTRICITABINE [Concomitant]

REACTIONS (1)
  - Hepatitis B [None]
